FAERS Safety Report 18872084 (Version 1)
Quarter: 2021Q1

REPORT INFORMATION
  Report Type: Spontaneous
  Country: US (occurrence: US)
  Receive Date: 20210210
  Receipt Date: 20210210
  Transmission Date: 20210420
  Serious: No
  Sender: FDA-Public Use
  Company Number: None

PATIENT
  Age: 30 Year
  Sex: Female
  Weight: 75 kg

DRUGS (1)
  1. EPCLUSA [Suspect]
     Active Substance: SOFOSBUVIR\VELPATASVIR
     Indication: CHRONIC HEPATITIS C
     Route: 048
     Dates: start: 20191011, end: 20200107

REACTIONS (2)
  - Hepatitis C RNA [None]
  - Drug ineffective [None]

NARRATIVE: CASE EVENT DATE: 20210203
